FAERS Safety Report 5142104-4 (Version None)
Quarter: 2006Q4

REPORT INFORMATION
  Report Type: 
  Country: None (occurrence: None)
  Receive Date: 20061102
  Receipt Date: 20061024
  Transmission Date: 20070319
  Serious: Yes (Other)
  Sender: FDA-Public Use
  Company Number: PHEH2006US13287

PATIENT
  Sex: Male

DRUGS (1)
  1. FEMARA [Suspect]
     Route: 064

REACTIONS (7)
  - ALLERGY TO PLANTS [None]
  - AUTISM [None]
  - DEVELOPMENTAL DELAY [None]
  - DRUG EXPOSURE BEFORE PREGNANCY [None]
  - DRUG HYPERSENSITIVITY [None]
  - HOUSE DUST ALLERGY [None]
  - PREMATURE BABY [None]
